FAERS Safety Report 17262003 (Version 2)
Quarter: 2020Q2

REPORT INFORMATION
  Report Type: Spontaneous
  Country: US (occurrence: US)
  Receive Date: 20200113
  Receipt Date: 20200406
  Transmission Date: 20200713
  Serious: Yes (Hospitalization)
  Sender: FDA-Public Use
  Company Number: US-FERRINGPH-2019FE07286

PATIENT
  Age: 69 Year
  Sex: Male

DRUGS (2)
  1. MYRBETRIQ [Concomitant]
     Active Substance: MIRABEGRON
     Indication: PRODUCT USED FOR UNKNOWN INDICATION
     Route: 065
  2. NOCDURNA [Suspect]
     Active Substance: DESMOPRESSIN ACETATE
     Indication: NOCTURIA
     Dosage: 55 ?G FOR ONE WEEK
     Route: 065
     Dates: start: 201908, end: 201908

REACTIONS (1)
  - Hyponatraemia [Recovered/Resolved]

NARRATIVE: CASE EVENT DATE: 2019
